FAERS Safety Report 8310147-5 (Version None)
Quarter: 2012Q2

REPORT INFORMATION
  Report Type: 
  Country: None (occurrence: None)
  Receive Date: 20120425
  Receipt Date: 20120419
  Transmission Date: 20120825
  Serious: Yes (Other)
  Sender: FDA-Public Use
  Company Number: GB-ASTELLAS-2012EU002764

PATIENT
  Sex: Male
  Weight: 67 kg

DRUGS (1)
  1. VESICARE [Suspect]
     Indication: URGE INCONTINENCE
     Dosage: 5 MG, UID/QD
     Route: 048
     Dates: start: 20120313, end: 20120414

REACTIONS (4)
  - PENILE PAIN [None]
  - CHOKING SENSATION [None]
  - RESTLESSNESS [None]
  - COUGH [None]
